FAERS Safety Report 21679518 (Version 1)
Quarter: 2022Q4

REPORT INFORMATION
  Report Type: Spontaneous
  Country: US (occurrence: US)
  Receive Date: 20221205
  Receipt Date: 20221205
  Transmission Date: 20230113
  Serious: No
  Sender: FDA-Public Use
  Company Number: US-STRIDES ARCOLAB LIMITED-2022SP010821

PATIENT
  Age: 29 Year
  Sex: Female

DRUGS (4)
  1. DONEPEZIL [Suspect]
     Active Substance: DONEPEZIL
     Indication: Craniocerebral injury
     Dosage: 5 MILLIGRAM PER DAY
     Route: 065
  2. DONEPEZIL [Suspect]
     Active Substance: DONEPEZIL
     Dosage: 10 MILLIGRAM PER DAY (DOSE WAS INCREASED )
     Route: 065
  3. AMANTADINE [Suspect]
     Active Substance: AMANTADINE
     Indication: Craniocerebral injury
     Dosage: UNK
     Route: 065
  4. AMANTADINE [Suspect]
     Active Substance: AMANTADINE
     Dosage: UNK (DOSE WAS REDUCED)
     Route: 065

REACTIONS (1)
  - Off label use [Unknown]
